FAERS Safety Report 9366827 (Version 2)
Quarter: 2013Q3

REPORT INFORMATION
  Report Type: Spontaneous
  Country: JP (occurrence: JP)
  Receive Date: 20130625
  Receipt Date: 20130712
  Transmission Date: 20140515
  Serious: No
  Sender: FDA-Public Use
  Company Number: JP-SUCAMPO PHARMA AMERICAS, INC-SPI201300427

PATIENT
  Age: 32 Year
  Sex: Male
  Weight: 58 kg

DRUGS (13)
  1. AMITIZA [Suspect]
     Indication: CONSTIPATION
     Dosage: 24 MCG, BID
     Route: 048
     Dates: start: 20130528, end: 20130605
  2. METHYCOBAL [Concomitant]
     Dosage: 500 MCG, BID
     Route: 048
  3. LIORESAL [Concomitant]
     Dosage: 5 MG, BID
     Route: 048
  4. CARBAMAZEPINE [Concomitant]
     Dosage: 100 MG, BID
     Route: 048
  5. LIPITOR [Concomitant]
     Dosage: 10 MG, QD
     Route: 048
  6. BAYASPIRIN [Concomitant]
     Dosage: 100 MG, QD
     Route: 048
  7. MENATETRENONE [Concomitant]
     Dosage: 15 MG, BID
     Route: 048
  8. ALOSENN [Concomitant]
     Dosage: 2 G, QD
     Route: 048
  9. FAMOTIDINE D [Concomitant]
     Dosage: 10 MG, QID
     Route: 048
  10. DAIPHEN [Concomitant]
     Dosage: 1 DF, QD, THREE TIMES A WEEK
     Route: 048
  11. AZANIN [Concomitant]
     Dosage: 25 MG, QD, THREE TIMES A WEEK
     Route: 048
  12. BONALON [Concomitant]
     Dosage: 35 MG, QD, ONCE A WEEK
     Route: 048
  13. PREDONINE [Concomitant]
     Dosage: 5 MG, QD
     Route: 048

REACTIONS (3)
  - Dyspnoea [None]
  - Dysaesthesia pharynx [None]
  - Cough [None]
